FAERS Safety Report 9962830 (Version 2)
Quarter: 2014Q1

REPORT INFORMATION
  Report Type: Report from Study
  Country: US (occurrence: US)
  Receive Date: 20140305
  Receipt Date: 20140305
  Transmission Date: 20141002
  Serious: Yes (Other)
  Sender: FDA-Public Use
  Company Number: US-ABBVIE-13P-163-1105563-00

PATIENT
  Age: 46 Year
  Sex: Male
  Weight: 79.45 kg

DRUGS (3)
  1. HUMIRA [Suspect]
     Indication: COLITIS ULCERATIVE
     Dates: start: 20130128
  2. APRISO [Concomitant]
     Indication: COLITIS ULCERATIVE
  3. LOSARTAN HCTZ [Concomitant]
     Indication: BLOOD PRESSURE

REACTIONS (1)
  - Polyp [Recovered/Resolved]
